FAERS Safety Report 16268216 (Version 1)
Quarter: 2019Q2

REPORT INFORMATION
  Report Type: Spontaneous
  Country: US (occurrence: US)
  Receive Date: 20190503
  Receipt Date: 20190503
  Transmission Date: 20190711
  Serious: No
  Sender: FDA-Public Use
  Company Number: US-TEVA-2019-US-1046279

PATIENT
  Sex: Female

DRUGS (1)
  1. ESTRADIOL VAGINAL CREAM [Suspect]
     Active Substance: ESTRADIOL
     Route: 067

REACTIONS (2)
  - Drug ineffective [Unknown]
  - Pruritus [Unknown]
